FAERS Safety Report 15541698 (Version 1)
Quarter: 2018Q4

REPORT INFORMATION
  Report Type: Spontaneous
  Country: US (occurrence: US)
  Receive Date: 20181023
  Receipt Date: 20181023
  Transmission Date: 20190205
  Serious: Yes (Other)
  Sender: FDA-Public Use
  Company Number: US-NAPPMUNDI-USA-2018-0143941

PATIENT
  Sex: Male

DRUGS (3)
  1. OXYCODONE HYDROCHLORIDE (SIMILAR TO NDA 22-272) [Suspect]
     Active Substance: OXYCODONE HYDROCHLORIDE
     Indication: METASTATIC CARCINOID TUMOUR
     Dosage: (SIX TIMES DAILY)
     Route: 048
  2. 9-TETRAHYDROCANNABINOL [Suspect]
     Active Substance: DRONABINOL
     Indication: METASTATIC CARCINOID TUMOUR
     Dosage: UNK
     Route: 065
  3. FENTANYL. [Suspect]
     Active Substance: FENTANYL
     Indication: METASTATIC CARCINOID TUMOUR
     Dosage: (SIX TIMES DAILY)
     Route: 065

REACTIONS (5)
  - Incoherent [Recovered/Resolved]
  - Substance abuse [Recovered/Resolved]
  - Skin discolouration [Recovered/Resolved]
  - Confusional state [Recovered/Resolved]
  - Drug ineffective [Recovered/Resolved]
